FAERS Safety Report 24113465 (Version 2)
Quarter: 2024Q3

REPORT INFORMATION
  Report Type: Report from Study
  Country: MX (occurrence: MX)
  Receive Date: 20240720
  Receipt Date: 20240829
  Transmission Date: 20241016
  Serious: Yes (Other)
  Sender: NOVARTIS
  Company Number: MX-002147023-NVSC2024MX147498

PATIENT
  Sex: Male
  Weight: 88 kg

DRUGS (10)
  1. CYCLOSPORINE [Suspect]
     Active Substance: CYCLOSPORINE
     Indication: Renal transplant
     Dosage: 1 DOSAGE FORM (100 MG), BID
     Route: 048
     Dates: start: 2010, end: 2015
  2. CYCLOSPORINE [Suspect]
     Active Substance: CYCLOSPORINE
     Dosage: 25MG: 75MG THAT ARE 3 CAPSULES IN THE MORNING, AND 50MG THAT ARE 2 CAPSULES AT NIGHT
     Route: 048
     Dates: start: 2018
  3. CYCLOSPORINE [Suspect]
     Active Substance: CYCLOSPORINE
     Dosage: 1 DOSAGE FORM, Q12H
     Route: 048
  4. CYCLOSPORINE [Suspect]
     Active Substance: CYCLOSPORINE
     Dosage: 25 MG 3 IN THE MORNING, 2 IN THE NIGHT
     Route: 048
     Dates: start: 2018
  5. CYCLOSPORINE [Suspect]
     Active Substance: CYCLOSPORINE
     Indication: Renal transplant
     Dosage: 75 MG: 75 MG IN THE MORNING AND 75 MG AT NIGHT IN 2018 DURING A MONTH
     Route: 048
     Dates: start: 2018, end: 2018
  6. CYCLOSPORINE [Suspect]
     Active Substance: CYCLOSPORINE
     Dosage: 75 MG, Q12H
     Route: 048
  7. LOSARTAN [Concomitant]
     Active Substance: LOSARTAN\LOSARTAN POTASSIUM
     Indication: Hypertension
     Dosage: 1 DOSAGE FORM, Q12H (SEVERAL  YEARS AGO, EXACT DATE UNKNOWN
     Route: 048
  8. PROPRANOLOL [Concomitant]
     Active Substance: PROPRANOLOL HYDROCHLORIDE
     Indication: Hypertension
     Dosage: 1 DOSAGE FORM, Q12H
     Route: 048
  9. CORTISONE [Concomitant]
     Active Substance: CORTISONE
     Indication: Renal transplant
     Dosage: 1 DOSAGE FORM, Q24H
     Route: 048
     Dates: start: 201009
  10. ASPIRIN [Concomitant]
     Active Substance: ASPIRIN
     Indication: Anticoagulant therapy
     Dosage: 1 DOSAGE FORM, Q24H
     Route: 048

REACTIONS (4)
  - Weight increased [Unknown]
  - Visual impairment [Not Recovered/Not Resolved]
  - Lacrimation increased [Not Recovered/Not Resolved]
  - Blood glucose increased [Unknown]

NARRATIVE: CASE EVENT DATE: 20220101
